FAERS Safety Report 9544116 (Version 3)
Quarter: 2017Q3

REPORT INFORMATION
  Report Type: Spontaneous
  Country: CA (occurrence: CA)
  Receive Date: 20130923
  Receipt Date: 20170825
  Transmission Date: 20171128
  Serious: Yes (Disabling)
  Sender: FDA-Public Use
  Company Number: CA-009507513-1309CAN009837

PATIENT
  Age: 76 Year
  Sex: Female

DRUGS (7)
  1. FOLIC ACID. [Concomitant]
     Active Substance: FOLIC ACID
     Dosage: 5 MG, QD
     Route: 048
  2. CYANOCOBALAMIN. [Concomitant]
     Active Substance: CYANOCOBALAMIN
     Dosage: 1200 MICROGRAM, QD
     Route: 048
  3. HYDRAZIDE (HYDROCHLOROTHIAZIDE) [Concomitant]
     Dosage: 1/2 TABLET
     Route: 048
  4. VITAMIN D [Concomitant]
     Active Substance: CHOLECALCIFEROL
     Dosage: ONE PO OD
     Route: 048
  5. FOSAVANCE [Suspect]
     Active Substance: ALENDRONATE SODIUM\CHOLECALCIFEROL
     Indication: BONE DENSITY DECREASED
     Dosage: 1 DF, QW, STRENGTH:70/5600
     Route: 048
     Dates: start: 20120217, end: 20120407
  6. APO LANSOPRAZOLE [Concomitant]
     Dosage: 30 MG, BID
     Route: 048
     Dates: start: 20120217, end: 20120407
  7. MICARDIS [Concomitant]
     Active Substance: TELMISARTAN
     Dosage: UNK, QD
     Route: 065

REACTIONS (8)
  - Suicidal ideation [Not Recovered/Not Resolved]
  - Bone pain [Not Recovered/Not Resolved]
  - Arthritis [Not Recovered/Not Resolved]
  - Bone disorder [Not Recovered/Not Resolved]
  - Gait disturbance [Not Recovered/Not Resolved]
  - Hypoaesthesia [Not Recovered/Not Resolved]
  - Condition aggravated [Not Recovered/Not Resolved]
  - Pain in extremity [Not Recovered/Not Resolved]

NARRATIVE: CASE EVENT DATE: 2012
